FAERS Safety Report 10594718 (Version 6)
Quarter: 2015Q3

REPORT INFORMATION
  Report Type: Report from Study
  Country: CA (occurrence: CA)
  Receive Date: 20141120
  Receipt Date: 20150820
  Transmission Date: 20151125
  Serious: Yes (Life-Threatening, Hospitalization, Disabling)
  Sender: FDA-Public Use
  Company Number: CA-ROCHE-1492100

PATIENT
  Age: 63 Year
  Sex: Female

DRUGS (14)
  1. PREDNISONE. [Concomitant]
     Active Substance: PREDNISONE
     Route: 065
  2. RANITIDINE [Concomitant]
     Active Substance: RANITIDINE\RANITIDINE HYDROCHLORIDE
  3. ACTEMRA [Suspect]
     Active Substance: TOCILIZUMAB
     Route: 042
     Dates: start: 20150617, end: 201507
  4. RITUXAN [Suspect]
     Active Substance: RITUXIMAB
     Indication: RHEUMATOID ARTHRITIS
     Dosage: FREQUENCY:  DAY 1 AND DAY 15
     Route: 042
     Dates: start: 20131231, end: 20140904
  5. GABAPENTIN. [Concomitant]
     Active Substance: GABAPENTIN
  6. ACTEMRA [Suspect]
     Active Substance: TOCILIZUMAB
     Indication: RHEUMATOID ARTHRITIS
     Route: 042
     Dates: start: 2014
  7. RITUXAN [Suspect]
     Active Substance: RITUXIMAB
     Dosage: FREQUENCY: DAY 1 AND DAY 15
     Route: 042
     Dates: start: 20150722
  8. METHOTREXATE [Concomitant]
     Active Substance: METHOTREXATE
  9. NEPHRON [Concomitant]
  10. DOCUSATE [Concomitant]
     Active Substance: DOCUSATE
  11. LISINOPRIL. [Concomitant]
     Active Substance: LISINOPRIL
  12. ACTEMRA [Suspect]
     Active Substance: TOCILIZUMAB
     Route: 042
     Dates: start: 20141203
  13. CELEBREX [Concomitant]
     Active Substance: CELECOXIB
  14. LEUCOVORIN. [Concomitant]
     Active Substance: LEUCOVORIN

REACTIONS (9)
  - Drug ineffective [Unknown]
  - Dehydration [Not Recovered/Not Resolved]
  - Influenza [Unknown]
  - Pain [Not Recovered/Not Resolved]
  - Drug ineffective [Unknown]
  - Arthralgia [Not Recovered/Not Resolved]
  - Weight increased [Not Recovered/Not Resolved]
  - Intestinal perforation [Unknown]
  - Cystitis [Unknown]

NARRATIVE: CASE EVENT DATE: 201401
